FAERS Safety Report 19174846 (Version 1)
Quarter: 2021Q2

REPORT INFORMATION
  Report Type: Spontaneous
  Country: FR (occurrence: FR)
  Receive Date: 20210423
  Receipt Date: 20210423
  Transmission Date: 20210717
  Serious: Yes (Hospitalization, Other)
  Sender: FDA-Public Use
  Company Number: FR-SAMSUNG BIOEPIS-SB-2021-09696

PATIENT
  Age: 48 Year
  Sex: Female
  Weight: 52 kg

DRUGS (8)
  1. FERINJECT [Concomitant]
     Active Substance: FERRIC CARBOXYMALTOSE
     Indication: MINERAL SUPPLEMENTATION
     Dosage: SOLUTION FOR INJECTION / INFUSION?LAST ADMINISTRATION: 24?DEC?2020
     Route: 042
     Dates: start: 20201224
  2. TRIFLUCAN [Suspect]
     Active Substance: FLUCONAZOLE
     Indication: PRODUCT USED FOR UNKNOWN INDICATION
     Dosage: UNKNOWN
     Route: 065
  3. CERNEVIT [Concomitant]
     Active Substance: VITAMINS
     Indication: HYPOVITAMINOSIS
     Dosage: LAST ADMINISTRATION : 24?DEC?2020
     Route: 042
     Dates: start: 20201224
  4. LASILIX [Concomitant]
     Active Substance: FUROSEMIDE
     Indication: OEDEMA
     Dosage: UNKNOWN
     Route: 065
  5. IMRALDI [Suspect]
     Active Substance: ADALIMUMAB
     Indication: ENTERITIS
     Route: 058
     Dates: start: 20201224, end: 20201224
  6. IMRALDI [Suspect]
     Active Substance: ADALIMUMAB
     Indication: ENTERITIS
     Route: 058
     Dates: start: 20201211, end: 20201211
  7. INFLIXIMAB [Suspect]
     Active Substance: INFLIXIMAB
     Indication: PRODUCT USED FOR UNKNOWN INDICATION
     Route: 065
     Dates: start: 202006
  8. ZOPHREN [Suspect]
     Active Substance: ONDANSETRON
     Indication: NAUSEA
     Dosage: ORAL LYOPHILISATE
     Route: 048
     Dates: start: 20201219, end: 20210105

REACTIONS (12)
  - Intraocular pressure increased [Unknown]
  - Depression [Unknown]
  - Osteoporosis [Unknown]
  - Asthma [Unknown]
  - Nasal septum perforation [Unknown]
  - Dyspnoea [Unknown]
  - Product use in unapproved indication [Unknown]
  - Dermatitis [Recovering/Resolving]
  - Gastrointestinal disorder [Unknown]
  - Stevens-Johnson syndrome [Unknown]
  - Hepatitis C [Unknown]
  - Sinusitis [Unknown]

NARRATIVE: CASE EVENT DATE: 20210105
